FAERS Safety Report 9819697 (Version 1)
Quarter: 2014Q1

REPORT INFORMATION
  Report Type: Spontaneous
  Country: None (occurrence: US)
  Receive Date: 20140115
  Receipt Date: 20140115
  Transmission Date: 20141002
  Serious: No
  Sender: FDA-Public Use
  Company Number: US-ALLERGAN-1316505US

PATIENT
  Age: 79 Year
  Sex: Female

DRUGS (6)
  1. PREDNISOLONE ACETATE, 1.0% [Suspect]
     Indication: POSTOPERATIVE CARE
     Dosage: 2 GTT, QID
     Route: 047
  2. ATENOLOL [Concomitant]
     Indication: HEART RATE IRREGULAR
     Dosage: 25 MG, QD
     Route: 048
  3. DIGOXIN [Concomitant]
     Indication: HEART RATE IRREGULAR
     Dosage: 0.125 MG, QD
     Route: 048
  4. WARFARIN [Concomitant]
     Indication: HEART RATE IRREGULAR
     Dosage: 5 MG, QD
     Route: 048
  5. SERTRALINE [Concomitant]
     Indication: DEPRESSION
     Dosage: 50 MG, QD
     Route: 048
  6. SERTRALINE [Concomitant]
     Indication: ANXIETY

REACTIONS (2)
  - Blood pressure increased [Not Recovered/Not Resolved]
  - Heart rate decreased [Not Recovered/Not Resolved]
